FAERS Safety Report 6869452-1 (Version None)
Quarter: 2010Q3

REPORT INFORMATION
  Report Type: 
  Country: None (occurrence: None)
  Receive Date: 20100722
  Receipt Date: 20080809
  Transmission Date: 20110219
  Serious: No
  Sender: FDA-Public Use
  Company Number: US-PFIZER INC-2008061331

PATIENT
  Sex: Female
  Weight: 75.75 kg

DRUGS (8)
  1. CHANTIX [Suspect]
     Indication: SMOKING CESSATION THERAPY
     Route: 048
     Dates: start: 20080701, end: 20080716
  2. CYMBALTA [Suspect]
     Indication: DEPRESSION
     Route: 048
     Dates: start: 20061201
  3. ACYCLOVIR [Concomitant]
  4. ALBUTEROL [Concomitant]
     Route: 055
  5. ATROVENT [Concomitant]
     Route: 055
  6. IBUPROFEN [Concomitant]
  7. DARVOCET [Concomitant]
  8. ADVAIR DISKUS 100/50 [Concomitant]
     Route: 055

REACTIONS (4)
  - CRYING [None]
  - EMOTIONAL DISORDER [None]
  - NAUSEA [None]
  - NIGHTMARE [None]
